FAERS Safety Report 6229224-8 (Version None)
Quarter: 2009Q2

REPORT INFORMATION
  Report Type: 
  Country: None (occurrence: None)
  Receive Date: 20090611
  Receipt Date: 20090611
  Transmission Date: 20091009
  Serious: Yes (Other)
  Sender: FDA-Public Use
  Company Number: None

PATIENT
  Sex: Female
  Weight: 66 kg

DRUGS (1)
  1. OXCARBAZEPINE [Suspect]
     Indication: EPILEPSY
     Dosage: 600 MG TAB 1 TAB AM/2TABS PM PO
     Route: 048
     Dates: start: 20080201

REACTIONS (6)
  - ASTHENIA [None]
  - FATIGUE [None]
  - MIGRAINE [None]
  - NAUSEA [None]
  - PHOTOPHOBIA [None]
  - TREMOR [None]
